FAERS Safety Report 24093125 (Version 1)
Quarter: 2024Q3

REPORT INFORMATION
  Report Type: Report from Study
  Country: US (occurrence: US)
  Receive Date: 20240715
  Receipt Date: 20240715
  Transmission Date: 20241017
  Serious: Yes (Death)
  Sender: OTSUKA
  Company Number: US-OTSUKA-2024_019552

PATIENT
  Sex: Male
  Weight: 68.04 kg

DRUGS (1)
  1. TOLVAPTAN [Suspect]
     Active Substance: TOLVAPTAN
     Indication: Blood sodium decreased
     Dosage: 30 MG
     Route: 065
     Dates: end: 20240709

REACTIONS (2)
  - Cardiac disorder [Fatal]
  - Cerebrovascular accident [Fatal]
